FAERS Safety Report 8224682-1 (Version None)
Quarter: 2012Q1

REPORT INFORMATION
  Report Type: 
  Country: None (occurrence: None)
  Receive Date: 20120321
  Receipt Date: 20120306
  Transmission Date: 20120608
  Serious: Yes (Other)
  Sender: FDA-Public Use
  Company Number: JP-JNJFOC-20120309231

PATIENT
  Sex: Female

DRUGS (10)
  1. ZYRTEC [Suspect]
     Route: 048
     Dates: start: 20120222
  2. PERIACTIN [Suspect]
     Route: 048
     Dates: start: 20120304, end: 20120301
  3. CLARITHROMYCIN [Suspect]
     Route: 048
     Dates: start: 20120304, end: 20120301
  4. LEBENIN [Suspect]
     Route: 048
     Dates: start: 20120222
  5. PERIACTIN [Suspect]
     Indication: RHINITIS ALLERGIC
     Route: 048
     Dates: start: 20120222
  6. CLARITHROMYCIN [Suspect]
     Indication: RHINITIS ALLERGIC
     Route: 048
     Dates: start: 20120222
  7. ZYRTEC [Suspect]
     Indication: RHINITIS ALLERGIC
     Route: 048
     Dates: start: 20120304, end: 20120301
  8. MUCODYNE-DS [Suspect]
     Route: 048
     Dates: start: 20120222
  9. LEBENIN [Suspect]
     Indication: RHINITIS ALLERGIC
     Route: 048
     Dates: start: 20120304, end: 20120301
  10. MUCODYNE-DS [Suspect]
     Indication: RHINITIS ALLERGIC
     Route: 048
     Dates: start: 20120304, end: 20120301

REACTIONS (2)
  - HALLUCINATION [None]
  - VOMITING [None]
